FAERS Safety Report 16986337 (Version 2)
Quarter: 2020Q1

REPORT INFORMATION
  Report Type: Report from Study
  Country: BR (occurrence: BR)
  Receive Date: 20191101
  Receipt Date: 20200107
  Transmission Date: 20200409
  Serious: Yes (Hospitalization)
  Sender: FDA-Public Use
  Company Number: BR-BIOGEN-2018BI00629047

PATIENT
  Sex: Male

DRUGS (6)
  1. LORAX [Concomitant]
     Indication: PRODUCT USED FOR UNKNOWN INDICATION
     Route: 065
  2. SIMVASTATIN. [Concomitant]
     Active Substance: SIMVASTATIN
     Indication: BLOOD CHOLESTEROL INCREASED
     Route: 065
  3. VITAMIN D [Concomitant]
     Active Substance: VITAMIN D NOS
     Indication: PRODUCT USED FOR UNKNOWN INDICATION
     Route: 065
  4. TYSABRI [Suspect]
     Active Substance: NATALIZUMAB
     Indication: MULTIPLE SCLEROSIS
     Route: 050
     Dates: start: 20180302
  5. HYDROCORTISONE ACETATE. [Suspect]
     Active Substance: HYDROCORTISONE ACETATE
     Indication: HEADACHE
     Dosage: 2 TABLETS
     Route: 050
  6. SEROQUEL XR [Concomitant]
     Active Substance: QUETIAPINE FUMARATE
     Indication: PRODUCT USED FOR UNKNOWN INDICATION
     Route: 065

REACTIONS (13)
  - Alcohol abuse [Unknown]
  - Headache [Recovered/Resolved]
  - Aggression [Unknown]
  - Hyperacusis [Unknown]
  - Irritability [Recovered/Resolved]
  - Mood altered [Unknown]
  - Fall [Recovered/Resolved]
  - Injury [Unknown]
  - Multiple sclerosis [Unknown]
  - Insomnia [Unknown]
  - Tremor [Recovered/Resolved]
  - Depression [Not Recovered/Not Resolved]
  - Decreased appetite [Unknown]
